FAERS Safety Report 18009610 (Version 3)
Quarter: 2020Q3

REPORT INFORMATION
  Report Type: Spontaneous
  Country: IN (occurrence: IN)
  Receive Date: 20200710
  Receipt Date: 20200812
  Transmission Date: 20201103
  Serious: Yes (Death, Hospitalization, Other)
  Sender: FDA-Public Use
  Company Number: IN-SA-2020SA176902

PATIENT

DRUGS (3)
  1. TERIFLUNOMIDE. [Suspect]
     Active Substance: TERIFLUNOMIDE
     Indication: MULTIPLE SCLEROSIS
     Dosage: 14 MG
     Route: 048
  2. PREDNISOLONE. [Suspect]
     Active Substance: PREDNISOLONE
     Indication: DRUG REACTION WITH EOSINOPHILIA AND SYSTEMIC SYMPTOMS
     Dosage: 40 MG, QD
     Route: 048
  3. PREDNISOLONE. [Suspect]
     Active Substance: PREDNISOLONE
     Dosage: 30 MG

REACTIONS (16)
  - Drug reaction with eosinophilia and systemic symptoms [Not Recovered/Not Resolved]
  - Pyrexia [Not Recovered/Not Resolved]
  - Rash pruritic [Not Recovered/Not Resolved]
  - Skin lesion [Not Recovered/Not Resolved]
  - Septic shock [Fatal]
  - Therapy cessation [Not Recovered/Not Resolved]
  - Rebound effect [Not Recovered/Not Resolved]
  - Skin exfoliation [Not Recovered/Not Resolved]
  - Rash maculo-papular [Not Recovered/Not Resolved]
  - Dermatitis exfoliative generalised [Not Recovered/Not Resolved]
  - Erythema [Not Recovered/Not Resolved]
  - Eosinophilia [Not Recovered/Not Resolved]
  - Acute hepatic failure [Recovering/Resolving]
  - Rash [Recovered/Resolved]
  - Leukocytosis [Not Recovered/Not Resolved]
  - Swelling face [Not Recovered/Not Resolved]
